FAERS Safety Report 7716689-5 (Version None)
Quarter: 2011Q3

REPORT INFORMATION
  Report Type: 
  Country: None (occurrence: None)
  Receive Date: 20110829
  Receipt Date: 20110819
  Transmission Date: 20111222
  Serious: Yes (Death, Hospitalization)
  Sender: FDA-Public Use
  Company Number: JP-JNJFOC-20110809182

PATIENT
  Sex: Male
  Weight: 82 kg

DRUGS (24)
  1. ELENTAL [Concomitant]
     Dosage: 3 PAC
     Route: 048
     Dates: start: 20110720, end: 20110724
  2. VOLTAREN [Concomitant]
     Dosage: ROUTE: OD
     Dates: start: 20110731
  3. PENTAZOCINE LACTATE [Concomitant]
     Dosage: ROUTE: IM
     Dates: start: 20110805
  4. ATARAX [Concomitant]
     Dosage: 25 DF, ROUTE IM
     Dates: start: 20110802, end: 20110802
  5. REMICADE [Suspect]
     Indication: BEHCET'S SYNDROME
     Dosage: FIRST DOSE OF INFLIXIMAB
     Route: 042
     Dates: start: 20110720
  6. POTASSIUM CHLORIDE [Concomitant]
     Dosage: 1 DF, ROUTE 051
     Dates: start: 20110802
  7. ISOTONIC SODIUM CHLORIDE SOLUTION [Concomitant]
     Dosage: ROUTE: 051
     Dates: start: 20110805
  8. DEPAS [Concomitant]
     Dosage: 1 TAB
     Route: 048
     Dates: start: 20110731
  9. ATARAX [Concomitant]
     Dosage: 12.5 DF,  ROUTE: IM
     Dates: start: 20110803
  10. BETAMETHASONE [Concomitant]
     Indication: BEHCET'S SYNDROME
     Route: 048
     Dates: start: 20110714, end: 20110810
  11. RESTAMIN [Concomitant]
     Dosage: 5 TAB
     Route: 048
     Dates: start: 20110720
  12. DECADRON [Concomitant]
     Route: 042
     Dates: start: 20110711, end: 20110813
  13. ZOLPIDEM [Concomitant]
     Route: 048
     Dates: start: 20110720
  14. ELENTAL [Concomitant]
     Dosage: 2 PAC
     Route: 048
     Dates: start: 20110725
  15. DEPAS [Concomitant]
     Dosage: 1 TAB
     Route: 048
     Dates: start: 20110728, end: 20110728
  16. DEPAS [Concomitant]
     Dosage: 2 TAB
     Route: 048
     Dates: start: 20110729, end: 20110729
  17. DECADRON [Concomitant]
     Indication: BEHCET'S SYNDROME
     Dosage: ROUTE: IM
     Dates: start: 20110811, end: 20110812
  18. SOLACET D [Concomitant]
     Dosage: 1 DF, ROUTE: DR
     Dates: start: 20110729
  19. ATARAX [Concomitant]
     Dosage: 25 DF, ROUTE IM
     Dates: start: 20110731, end: 20110731
  20. ALBUMIN (HUMAN) [Concomitant]
     Route: 042
     Dates: start: 20110815
  21. PENTASA [Suspect]
     Indication: BEHCET'S SYNDROME
     Route: 048
     Dates: start: 20110705, end: 20110710
  22. COLCHICINE [Suspect]
     Indication: BEHCET'S SYNDROME
     Route: 048
     Dates: end: 20110813
  23. POSTERISAN [Concomitant]
     Dosage: ROUTE: 051
  24. ATARAX [Concomitant]
     Dosage: 37.5 DF, ROUTE IM
     Dates: start: 20110801, end: 20110801

REACTIONS (11)
  - RENAL FAILURE ACUTE [None]
  - HAEMORRHOIDAL HAEMORRHAGE [None]
  - HYPERKALAEMIA [None]
  - AXONAL NEUROPATHY [None]
  - DYSPNOEA [None]
  - BONE MARROW FAILURE [None]
  - MALAISE [None]
  - PAIN [None]
  - STAPHYLOCOCCAL BACTERAEMIA [None]
  - MULTI-ORGAN FAILURE [None]
  - GASTRIC ULCER [None]
